FAERS Safety Report 18343259 (Version 1)
Quarter: 2020Q4

REPORT INFORMATION
  Report Type: Other
  Country: US (occurrence: AU)
  Receive Date: 20201005
  Receipt Date: 20201005
  Transmission Date: 20210113
  Serious: Yes (Hospitalization, Other)
  Sender: FDA-Public Use
  Company Number: AU-BRECKENRIDGE PHARMACEUTICAL, INC.-2092403

PATIENT
  Age: 35 Year
  Sex: Female

DRUGS (1)
  1. METHYLPHENIDATE. [Suspect]
     Active Substance: METHYLPHENIDATE
     Route: 013

REACTIONS (4)
  - Infarction [None]
  - Compartment syndrome [None]
  - Gangrene [None]
  - Corneal dystrophy [None]
